FAERS Safety Report 15931616 (Version 1)
Quarter: 2019Q1

REPORT INFORMATION
  Report Type: Spontaneous
  Country: FR (occurrence: FR)
  Receive Date: 20190207
  Receipt Date: 20190207
  Transmission Date: 20190417
  Serious: Yes (Death, Life-Threatening, Hospitalization, Other)
  Sender: FDA-Public Use
  Company Number: FR-SUN PHARMACEUTICAL INDUSTRIES LTD-2019RR-198271

PATIENT
  Age: 59 Year
  Sex: Male
  Weight: 87 kg

DRUGS (4)
  1. OXALIPLATIN. [Suspect]
     Active Substance: OXALIPLATIN
     Indication: MANTLE CELL LYMPHOMA STAGE III
     Dosage: ()CYCLICAL
     Route: 065
  2. RITUXIMAB. [Concomitant]
     Active Substance: RITUXIMAB
     Indication: MANTLE CELL LYMPHOMA STAGE III
     Dosage: ()CYCLICAL
     Route: 065
  3. DEXAMETHASONE. [Concomitant]
     Active Substance: DEXAMETHASONE
     Indication: MANTLE CELL LYMPHOMA STAGE III
     Dosage: ()CYCLICAL
     Route: 065
  4. CYTARABINE. [Concomitant]
     Active Substance: CYTARABINE
     Indication: MANTLE CELL LYMPHOMA STAGE III
     Dosage: ()CYCLICAL
     Route: 065

REACTIONS (12)
  - Arrhythmia [Fatal]
  - Haemodynamic instability [Fatal]
  - Renal ischaemia [Fatal]
  - Hepatotoxicity [Fatal]
  - Acute respiratory distress syndrome [Fatal]
  - Intestinal ischaemia [Fatal]
  - Lactic acidosis [Fatal]
  - Acute kidney injury [Fatal]
  - Venoocclusive liver disease [Fatal]
  - Hepatitis fulminant [Fatal]
  - Multiple organ dysfunction syndrome [Fatal]
  - Hepatic ischaemia [Fatal]

NARRATIVE: CASE EVENT DATE: 20150324
